FAERS Safety Report 17134347 (Version 1)
Quarter: 2019Q4

REPORT INFORMATION
  Report Type: Spontaneous
  Country: FR (occurrence: FR)
  Receive Date: 20191210
  Receipt Date: 20191210
  Transmission Date: 20200122
  Serious: Yes (Hospitalization)
  Sender: FDA-Public Use
  Company Number: FR-ZYDUS-044347

PATIENT
  Age: 51 Year
  Sex: Male
  Weight: 89 kg

DRUGS (4)
  1. HALDOL [Concomitant]
     Active Substance: HALOPERIDOL
     Indication: SCHIZOPHRENIA
     Dosage: INJECTABLE SOLUTION
     Route: 030
     Dates: start: 20180126
  2. VALIUM [Concomitant]
     Active Substance: DIAZEPAM
     Indication: ANXIETY
     Dosage: ORAL SOLUTION IN DROPS
     Route: 048
     Dates: start: 20150120
  3. THERALENE [Suspect]
     Active Substance: TRIMEPRAZINE
     Indication: SLEEP DISORDER
     Dosage: ORAL SOLUTION DROPS
     Route: 048
     Dates: start: 20180126, end: 20190929
  4. PAROXETINE. [Suspect]
     Active Substance: PAROXETINE
     Indication: DEPRESSION
     Route: 048
     Dates: start: 20190424, end: 20191010

REACTIONS (3)
  - Dyskinesia [Recovered/Resolved]
  - Echolalia [Recovered/Resolved]
  - Stereotypy [Recovered/Resolved]

NARRATIVE: CASE EVENT DATE: 201909
